FAERS Safety Report 5684368-4 (Version None)
Quarter: 2008Q1

REPORT INFORMATION
  Report Type: 
  Country: None (occurrence: None)
  Receive Date: 20080328
  Receipt Date: 20080325
  Transmission Date: 20080703
  Serious: Yes (Hospitalization)
  Sender: FDA-Public Use
  Company Number: B0513762A

PATIENT
  Sex: Male

DRUGS (1)
  1. ARIXTRA [Suspect]
     Indication: KNEE ARTHROPLASTY
     Dosage: 2.5MG PER DAY
     Route: 058
     Dates: start: 20080307, end: 20080317

REACTIONS (2)
  - POST PROCEDURAL HAEMATOMA [None]
  - SWELLING [None]
